FAERS Safety Report 9172481 (Version 1)
Quarter: 2013Q1

REPORT INFORMATION
  Report Type: Spontaneous
  Country: US (occurrence: US)
  Receive Date: 20130319
  Receipt Date: 20130319
  Transmission Date: 20140127
  Serious: No
  Sender: FDA-Public Use
  Company Number: US-GALDERMA-US-GDP-12412835

PATIENT
  Age: 64 Year
  Sex: Female
  Weight: 68 kg

DRUGS (6)
  1. VECTICAL [Suspect]
     Indication: PSORIASIS
     Route: 061
     Dates: start: 20111208
  2. VECTICAL [Suspect]
     Route: 061
     Dates: start: 201110
  3. CLOBEX [Concomitant]
     Indication: PSORIASIS
     Route: 061
     Dates: start: 20111208, end: 20120106
  4. VITAMIN E [Concomitant]
     Indication: VITAMIN SUPPLEMENTATION
     Route: 048
  5. EVENING PRIMROSE [Concomitant]
     Indication: VITAMIN SUPPLEMENTATION
     Route: 048
  6. CALCIUM WITH VITAMIN D [Concomitant]
     Indication: VITAMIN SUPPLEMENTATION
     Route: 048

REACTIONS (2)
  - Drug ineffective [Recovering/Resolving]
  - Disease recurrence [None]
